FAERS Safety Report 5114977-2 (Version None)
Quarter: 2006Q3

REPORT INFORMATION
  Report Type: 
  Country: None (occurrence: None)
  Receive Date: 20060926
  Receipt Date: 20060918
  Transmission Date: 20061208
  Serious: Yes (Disabling)
  Sender: FDA-Public Use
  Company Number: US-MERCK-0609USA03750

PATIENT
  Sex: Female

DRUGS (1)
  1. VYTORIN [Suspect]
     Indication: BLOOD CHOLESTEROL INCREASED
     Route: 048
     Dates: start: 20050101

REACTIONS (3)
  - DIPLEGIA [None]
  - HEPATIC ENZYME INCREASED [None]
  - MUSCLE DISORDER [None]
